FAERS Safety Report 5290241-6 (Version None)
Quarter: 2007Q2

REPORT INFORMATION
  Report Type: 
  Country: None (occurrence: None)
  Receive Date: 20070402
  Receipt Date: 20070326
  Transmission Date: 20071010
  Serious: Yes (Death, Hospitalization)
  Sender: FDA-Public Use
  Company Number: 163-21880-07021244

PATIENT
  Age: 75 Year
  Sex: Male
  Weight: 62.1428 kg

DRUGS (25)
  1. REVLIMID [Suspect]
     Indication: MYELODYSPLASTIC SYNDROME
     Dosage: 10 MG, 1 IN 1 D, ORAL
     Route: 048
     Dates: start: 20070101, end: 20070101
  2. DIGOXIN [Concomitant]
  3. LEXAPRO [Concomitant]
  4. DURAGESIC-100 [Concomitant]
  5. DEMADEX [Concomitant]
  6. ALDACTONE [Concomitant]
  7. PREDNISONE TAB [Concomitant]
  8. PROTONIX [Concomitant]
  9. K-DUR 10 [Concomitant]
  10. ATIVAN [Concomitant]
  11. XANAX [Concomitant]
  12. PERCOCET [Concomitant]
  13. AMBIEN [Concomitant]
  14. LACTULOSE [Concomitant]
  15. MAGNESIUM OXIDE (MAGNESIUM OXIDE) [Concomitant]
  16. DILANTIN KAPSEAL [Concomitant]
  17. MARINOL [Concomitant]
  18. ALBUTEROL [Concomitant]
  19. IPRATROPIUM NEBULIZER (IPRATROPIUM) [Concomitant]
  20. ZAROXOLYN [Concomitant]
  21. VITAMIN B12 [Concomitant]
  22. VITAMIN B6 [Concomitant]
  23. FOLIC ACID [Concomitant]
  24. CENTRUM SILVER (CENTRUM SILVER) [Concomitant]
  25. VESICARE [Concomitant]

REACTIONS (5)
  - DISEASE PROGRESSION [None]
  - FLUID RETENTION [None]
  - MYELODYSPLASTIC SYNDROME [None]
  - ORAL INTAKE REDUCED [None]
  - WEIGHT DECREASED [None]
